FAERS Safety Report 5513982-1 (Version None)
Quarter: 2007Q4

REPORT INFORMATION
  Report Type: 
  Country: None (occurrence: None)
  Receive Date: 20071106
  Receipt Date: 20070111
  Transmission Date: 20080405
  Serious: Yes (Other)
  Sender: FDA-Public Use
  Company Number: US-JNJFOC-20070400655

PATIENT
  Sex: Female
  Weight: 65.7716 kg

DRUGS (3)
  1. MOTRIN [Suspect]
     Indication: HEADACHE
     Dosage: ONCE A DAY
     Dates: start: 20060101
  2. DETROL LA [Suspect]
     Indication: BLADDER DISORDER
     Dosage: 4 MG, 1 IN 1 DAY
     Dates: start: 20061201
  3. SYNTHROID [Concomitant]

REACTIONS (1)
  - GASTROINTESTINAL HAEMORRHAGE [None]
